FAERS Safety Report 21590975 (Version 1)
Quarter: 2022Q4

REPORT INFORMATION
  Report Type: Report from Study
  Country: US (occurrence: US)
  Receive Date: 20221114
  Receipt Date: 20221114
  Transmission Date: 20230112
  Serious: No
  Sender: FDA-Public Use
  Company Number: US-ABBVIE-22K-163-4479238-00

PATIENT
  Age: 31 Year
  Sex: Female

DRUGS (5)
  1. HUMIRA [Suspect]
     Active Substance: ADALIMUMAB
     Indication: Hidradenitis
     Route: 058
     Dates: start: 20210917, end: 20210917
  2. HUMIRA [Suspect]
     Active Substance: ADALIMUMAB
     Dosage: 80MG DAY 15
     Route: 058
     Dates: start: 20211001, end: 20211001
  3. HUMIRA [Suspect]
     Active Substance: ADALIMUMAB
     Dosage: DAY 29 40MG EVERY 7 DAYS
     Route: 058
     Dates: start: 20210410, end: 20211014
  4. HUMIRA [Suspect]
     Active Substance: ADALIMUMAB
     Route: 058
     Dates: start: 202110
  5. HUMIRA [Suspect]
     Active Substance: ADALIMUMAB
     Dosage: 80MG EVERY OTHER WEEK
     Route: 058
     Dates: start: 202112

REACTIONS (4)
  - Hidradenitis [Unknown]
  - Loss of personal independence in daily activities [Not Recovered/Not Resolved]
  - Impaired quality of life [Not Recovered/Not Resolved]
  - Therapeutic product effect delayed [Unknown]

NARRATIVE: CASE EVENT DATE: 20220501
